FAERS Safety Report 7904799-9 (Version None)
Quarter: 2011Q4

REPORT INFORMATION
  Report Type: 
  Country: None (occurrence: None)
  Receive Date: 20111109
  Receipt Date: 20111025
  Transmission Date: 20120403
  Serious: Yes (Hospitalization, Other)
  Sender: FDA-Public Use
  Company Number: PHHY2011DE95221

PATIENT
  Sex: Female

DRUGS (5)
  1. ALPHA RECEPTOR BLOCKER [Concomitant]
  2. BETA BLOCKING AGENTS [Concomitant]
  3. DIURETICS [Concomitant]
     Dates: start: 20110919
  4. DIOVAN HCT [Suspect]
     Dosage: 160 MG OF VALS AND 12.5 MG OF HYD
     Route: 048
     Dates: start: 20020226, end: 20111013
  5. ALISKIREN [Suspect]
     Indication: HYPERTENSION
     Dosage: 300 MG, DAILY
     Route: 048
     Dates: start: 20110921

REACTIONS (6)
  - BLOOD PRESSURE INADEQUATELY CONTROLLED [None]
  - DIABETES MELLITUS [None]
  - HYPERTENSIVE CRISIS [None]
  - BLOOD CHOLESTEROL INCREASED [None]
  - LOW DENSITY LIPOPROTEIN INCREASED [None]
  - HYPERTENSION [None]
